FAERS Safety Report 9424974 (Version 2)
Quarter: 2013Q3

REPORT INFORMATION
  Report Type: Spontaneous
  Country: CA (occurrence: CA)
  Receive Date: 20130729
  Receipt Date: 20130802
  Transmission Date: 20140515
  Serious: Yes (Disabling)
  Sender: FDA-Public Use
  Company Number: CA-PFIZER INC-2013207570

PATIENT
  Age: 44 Year
  Sex: Female

DRUGS (2)
  1. SOMAVERT [Suspect]
     Indication: ACROMEGALY
     Dosage: 10 MG, 1X/DAY
     Route: 058
     Dates: start: 20130410
  2. SANDOSTATIN LAR [Concomitant]
     Indication: ACROMEGALY
     Dosage: 20 MG, EVERY 4 WEEKS
     Route: 030
     Dates: start: 2005

REACTIONS (4)
  - Muscle spasms [Recovered/Resolved with Sequelae]
  - Muscle spasms [Recovered/Resolved with Sequelae]
  - Hypoaesthesia [Recovered/Resolved with Sequelae]
  - Mobility decreased [Recovered/Resolved with Sequelae]
